FAERS Safety Report 5258801-6 (Version None)
Quarter: 2007Q1

REPORT INFORMATION
  Report Type: 
  Country: None (occurrence: None)
  Receive Date: 20070306
  Receipt Date: 20070306
  Transmission Date: 20070707
  Serious: Yes (Other)
  Sender: FDA-Public Use
  Company Number: None

PATIENT
  Age: 53 Year
  Sex: Female
  Weight: 92.5338 kg

DRUGS (3)
  1. ARTHROTEC [Suspect]
     Indication: FIBROMYALGIA
     Dosage: 75 MG DAILY PO
     Route: 048
     Dates: start: 20051001, end: 20070101
  2. ARTHROTEC [Suspect]
     Indication: OSTEOARTHRITIS
     Dosage: 75 MG DAILY PO
     Route: 048
     Dates: start: 20051001, end: 20070101
  3. ARTHROTEC [Suspect]
     Indication: SYSTEMIC LUPUS ERYTHEMATOSUS
     Dosage: 75 MG DAILY PO
     Route: 048
     Dates: start: 20051001, end: 20070101

REACTIONS (4)
  - CHEST PAIN [None]
  - ELECTROCARDIOGRAM ABNORMAL [None]
  - GAMMA-GLUTAMYLTRANSFERASE INCREASED [None]
  - VENTRICULAR EXTRASYSTOLES [None]
